FAERS Safety Report 23392213 (Version 1)
Quarter: 2024Q1

REPORT INFORMATION
  Report Type: Spontaneous
  Country: US (occurrence: US)
  Receive Date: 20240111
  Receipt Date: 20240111
  Transmission Date: 20240410
  Serious: No
  Sender: FDA-Public Use
  Company Number: US-PFIZER INC-202400010076

PATIENT
  Age: 58 Year
  Sex: Male

DRUGS (12)
  1. XELJANZ XR [Suspect]
     Active Substance: TOFACITINIB CITRATE
     Dates: start: 202309
  2. ADVAIR HFA [Concomitant]
     Active Substance: FLUTICASONE PROPIONATE\SALMETEROL XINAFOATE
  3. METOPROLOL [Concomitant]
     Active Substance: METOPROLOL
  4. ASPIRIN [Concomitant]
     Active Substance: ASPIRIN
  5. ROSUVASTATIN CALCIUM [Concomitant]
     Active Substance: ROSUVASTATIN CALCIUM
  6. CLOPIDOGREL [Concomitant]
     Active Substance: CLOPIDOGREL BISULFATE
  7. PANTOPRAZOLE [Concomitant]
     Active Substance: PANTOPRAZOLE
  8. RANOLAZINE [Concomitant]
     Active Substance: RANOLAZINE
  9. ALBUTEROL [Concomitant]
     Active Substance: ALBUTEROL
  10. LISINOPRIL [Concomitant]
     Active Substance: LISINOPRIL
  11. FLUARIX NOS [Concomitant]
     Active Substance: INFLUENZA VIRUS VACCINE
  12. TOZINAMERAN [Concomitant]
     Active Substance: TOZINAMERAN

REACTIONS (2)
  - Pain [Not Recovered/Not Resolved]
  - Malaise [Not Recovered/Not Resolved]

NARRATIVE: CASE EVENT DATE: 20231101
